FAERS Safety Report 19684744 (Version 1)
Quarter: 2021Q3

REPORT INFORMATION
  Report Type: Spontaneous
  Country: US (occurrence: US)
  Receive Date: 20210811
  Receipt Date: 20210811
  Transmission Date: 20211014
  Serious: Yes (Other)
  Sender: FDA-Public Use
  Company Number: US-BAYER-2021-188272

PATIENT
  Age: 62 Year
  Sex: Male

DRUGS (6)
  1. BETAMETHASONE. [Concomitant]
     Active Substance: BETAMETHASONE
  2. TRIMETHOPRIM SULFAMETHOXAZOLE [Suspect]
     Active Substance: SULFAMETHOXAZOLE\TRIMETHOPRIM
  3. AMLODIPINE [Concomitant]
     Active Substance: AMLODIPINE BESYLATE
  4. CIPROFLOXACIN. [Suspect]
     Active Substance: CIPROFLOXACIN
     Dosage: UNK
     Route: 048
  5. AMPICILLIN [Concomitant]
     Active Substance: AMPICILLIN
  6. LOSARTAN. [Concomitant]
     Active Substance: LOSARTAN

REACTIONS (6)
  - Meningitis aseptic [Recovering/Resolving]
  - Chills [None]
  - Myalgia [None]
  - Pyrexia [None]
  - Vomiting [None]
  - Dizziness [None]
